FAERS Safety Report 16100254 (Version 1)
Quarter: 2019Q1

REPORT INFORMATION
  Report Type: Spontaneous
  Country: US (occurrence: US)
  Receive Date: 20190321
  Receipt Date: 20190321
  Transmission Date: 20190418
  Serious: Yes (Other)
  Sender: FDA-Public Use
  Company Number: US-RECORDATI RARE DISEASES-US-R13005-18-00031

PATIENT
  Age: 3 Year
  Sex: Female

DRUGS (2)
  1. CHEMET [Suspect]
     Active Substance: SUCCIMER
     Indication: METAL POISONING
     Route: 048
     Dates: start: 201712
  2. CHEMET [Suspect]
     Active Substance: SUCCIMER
     Route: 048
     Dates: start: 201801

REACTIONS (1)
  - Blood alkaline phosphatase increased [Recovering/Resolving]

NARRATIVE: CASE EVENT DATE: 20180118
